FAERS Safety Report 7479580-8 (Version None)
Quarter: 2011Q2

REPORT INFORMATION
  Report Type: 
  Country: None (occurrence: None)
  Receive Date: 20110513
  Receipt Date: 20100507
  Transmission Date: 20111010
  Serious: Yes (Hospitalization, Other)
  Sender: FDA-Public Use
  Company Number: DE-GENENTECH-301849

PATIENT
  Sex: Female

DRUGS (2)
  1. LUCENTIS [Suspect]
     Indication: AGE-RELATED MACULAR DEGENERATION
     Dosage: UNK
     Route: 031
     Dates: start: 20090303
  2. LUCENTIS [Suspect]
     Dosage: UNK
     Route: 031
     Dates: start: 20100427

REACTIONS (7)
  - CEREBROVASCULAR ACCIDENT [None]
  - VITREOUS OPACITIES [None]
  - HYPERTENSION [None]
  - VISUAL IMPAIRMENT [None]
  - CYST [None]
  - DRUG INEFFECTIVE [None]
  - VISUAL ACUITY REDUCED [None]
